FAERS Safety Report 6391089-1 (Version None)
Quarter: 2009Q4

REPORT INFORMATION
  Report Type: 
  Country: None (occurrence: None)
  Receive Date: 20091006
  Receipt Date: 20091006
  Transmission Date: 20100525
  Serious: Yes (Death)
  Sender: FDA-Public Use
  Company Number: None

PATIENT
  Age: 55 Year
  Sex: Male
  Weight: 100.6985 kg

DRUGS (1)
  1. EXENATIDE [Suspect]
     Indication: HYPERGLYCAEMIA
     Dosage: 5 ML/HR CONTINUOUS IV
     Route: 042
     Dates: start: 20090907, end: 20090908

REACTIONS (4)
  - GENERAL PHYSICAL HEALTH DETERIORATION [None]
  - NERVOUS SYSTEM DISORDER [None]
  - RENAL FAILURE [None]
  - UNRESPONSIVE TO STIMULI [None]
